FAERS Safety Report 5008053-7 (Version None)
Quarter: 2006Q2

REPORT INFORMATION
  Report Type: 
  Country: None (occurrence: None)
  Receive Date: 20060516
  Receipt Date: 20060508
  Transmission Date: 20061013
  Serious: Yes (Other)
  Sender: FDA-Public Use
  Company Number: STI-2006-00010

PATIENT
  Sex: Female

DRUGS (1)
  1. 516B CLINDOXYL GEL (CLINDAMYCIN + BENZOYL PEROXIDE) [Suspect]
     Indication: ACNE
     Dosage: TOPICAL (MORNING)
     Route: 061
     Dates: start: 20060407

REACTIONS (3)
  - DRUG HYPERSENSITIVITY [None]
  - PYREXIA [None]
  - VOMITING [None]
